FAERS Safety Report 14413786 (Version 1)
Quarter: 2018Q1

REPORT INFORMATION
  Report Type: Spontaneous
  Country: US (occurrence: US)
  Receive Date: 20180117
  Receipt Date: 20180117
  Transmission Date: 20180509
  Serious: No
  Sender: FDA-Public Use
  Company Number: None

PATIENT
  Age: 75 Year
  Sex: Male

DRUGS (9)
  1. ZYTIGA [Suspect]
     Active Substance: ABIRATERONE ACETATE
     Indication: PROSTATE CANCER
     Route: 048
     Dates: start: 20171127
  2. CARVEDILOL. [Concomitant]
     Active Substance: CARVEDILOL
  3. PREDNISONE. [Concomitant]
     Active Substance: PREDNISONE
  4. ZETIA [Concomitant]
     Active Substance: EZETIMIBE
  5. EPLERENONE. [Concomitant]
     Active Substance: EPLERENONE
  6. ASPIR-LOW  DR [Concomitant]
  7. FINASTERIDE. [Concomitant]
     Active Substance: FINASTERIDE
  8. ATORVASTATIN CALCIUM. [Suspect]
     Active Substance: ATORVASTATIN CALCIUM
  9. ENTRESTO [Concomitant]
     Active Substance: SACUBITRIL\VALSARTAN

REACTIONS (1)
  - Urinary tract infection [None]

NARRATIVE: CASE EVENT DATE: 20180109
